FAERS Safety Report 11283844 (Version 1)
Quarter: 2015Q3

REPORT INFORMATION
  Report Type: Spontaneous
  Country: NO (occurrence: NO)
  Receive Date: 20150720
  Receipt Date: 20150720
  Transmission Date: 20151125
  Serious: Yes (Hospitalization, Other)
  Sender: FDA-Public Use
  Company Number: NO-ELI_LILLY_AND_COMPANY-NO201507003622

PATIENT
  Age: 48 Year
  Sex: Male

DRUGS (1)
  1. ZYPADHERA [Suspect]
     Active Substance: OLANZAPINE PAMOATE
     Indication: SCHIZOPHRENIA, PARANOID TYPE
     Dosage: 300 MG, 2/M
     Route: 030
     Dates: start: 20141216, end: 20150616

REACTIONS (4)
  - Blood pressure increased [Unknown]
  - Delirium [Recovered/Resolved]
  - Anxiety [Recovered/Resolved]
  - Suspiciousness [Recovered/Resolved]

NARRATIVE: CASE EVENT DATE: 20150616
